FAERS Safety Report 8906671 (Version 5)
Quarter: 2014Q1

REPORT INFORMATION
  Report Type: Spontaneous
  Country: US (occurrence: US)
  Receive Date: 20121114
  Receipt Date: 20140321
  Transmission Date: 20141002
  Serious: No
  Sender: FDA-Public Use
  Company Number: US-ELI_LILLY_AND_COMPANY-US201211001353

PATIENT
  Sex: Female
  Weight: 79.8 kg

DRUGS (17)
  1. ZYPREXA [Suspect]
     Indication: BIPOLAR DISORDER
     Dosage: 10 MG, QD
     Dates: start: 2000
  2. ZYPREXA [Suspect]
     Dosage: 5 MG, QD
  3. ZYPREXA [Suspect]
     Dosage: 15 MG, QD
  4. ZYPREXA [Suspect]
     Dosage: 1 DF, UNK
  5. OLANZAPINE [Suspect]
     Dosage: 1 DF, UNKNOWN
     Route: 048
     Dates: start: 20111230
  6. ZYPREXA ZYDIS [Suspect]
     Indication: BIPOLAR DISORDER
     Dosage: 10 MG, QD
     Dates: start: 201201
  7. ZYPREXA ZYDIS [Suspect]
     Dosage: 5 MG, QD
     Route: 048
  8. LITHIUM [Concomitant]
     Dosage: 1 DF, UNKNOWN
  9. TRAZODONE [Concomitant]
     Indication: BIPOLAR DISORDER
     Dosage: 300 MG, UNKNOWN
  10. CLONAZEPAM [Concomitant]
     Indication: BIPOLAR DISORDER
     Dosage: 3 MG, UNKNOWN
  11. FLUOXETINE [Concomitant]
     Dosage: 20 MG, TID
  12. GLIPIZIDE [Concomitant]
  13. METFORMIN [Concomitant]
  14. ACTOS [Concomitant]
     Indication: DIABETES MELLITUS
     Dosage: 15 MG, QD
     Route: 048
  15. FENOFIBRAT [Concomitant]
  16. MULTIVITAMIN [Concomitant]
  17. LISINOPRIL [Suspect]
     Dosage: 1 DF, UNKNOWN

REACTIONS (8)
  - Renal cyst [Unknown]
  - Blood glucose decreased [Unknown]
  - Weight decreased [Unknown]
  - Depressed mood [Unknown]
  - Headache [Unknown]
  - Blood glucose increased [Unknown]
  - Fatigue [Unknown]
  - Constipation [Recovered/Resolved]
